FAERS Safety Report 19078206 (Version 1)
Quarter: 2021Q1

REPORT INFORMATION
  Report Type: Spontaneous
  Country: US (occurrence: US)
  Receive Date: 20210330
  Receipt Date: 20210330
  Transmission Date: 20210420
  Serious: Yes (Hospitalization, Other)
  Sender: FDA-Public Use
  Company Number: None

PATIENT

DRUGS (2)
  1. GLIMEPIRIDE. [Suspect]
     Active Substance: GLIMEPIRIDE
  2. INSULIN ASPART [Suspect]
     Active Substance: INSULIN ASPART

REACTIONS (5)
  - Blood glucose decreased [None]
  - Hypophagia [None]
  - Therapy interrupted [None]
  - Mental status changes [None]
  - Femur fracture [None]

NARRATIVE: CASE EVENT DATE: 20191018
